FAERS Safety Report 24727055 (Version 1)
Quarter: 2024Q4

REPORT INFORMATION
  Report Type: Spontaneous
  Country: DE (occurrence: DE)
  Receive Date: 20241212
  Receipt Date: 20241212
  Transmission Date: 20250115
  Serious: Yes (Hospitalization, Other)
  Sender: MERCK
  Company Number: DE-BAYER-2024A165996

PATIENT
  Sex: Female

DRUGS (12)
  1. WINREVAIR [Suspect]
     Active Substance: SOTATERCEPT-CSRK
     Dosage: UNK
  2. ADEMPAS [Suspect]
     Active Substance: RIOCIGUAT
  3. ASPIRIN [Suspect]
     Active Substance: ASPIRIN
     Indication: Carotid artery stenosis
     Dosage: 100 MG, UNK
  4. TADALAFIL [Concomitant]
     Active Substance: TADALAFIL
  5. IRBESARTAN [Concomitant]
     Active Substance: IRBESARTAN
  6. IRBESARTAN [Concomitant]
     Active Substance: IRBESARTAN
  7. AMBRISENTAN [Concomitant]
     Active Substance: AMBRISENTAN
  8. DULOXETINE [Concomitant]
     Active Substance: DULOXETINE
  9. LEVOTHYROXINE [Concomitant]
     Active Substance: LEVOTHYROXINE
  10. MIRTAZAPINE [Concomitant]
     Active Substance: MIRTAZAPINE
  11. TORSEMIDE [Concomitant]
     Active Substance: TORSEMIDE
  12. SOTATERCEPT [Concomitant]
     Active Substance: SOTATERCEPT

REACTIONS (3)
  - Cerebral haemorrhage [Recovering/Resolving]
  - Contraindicated product administered [Unknown]
  - Memory impairment [Unknown]

NARRATIVE: CASE EVENT DATE: 20241021
